FAERS Safety Report 9733520 (Version 1)
Quarter: 2013Q4

REPORT INFORMATION
  Report Type: Spontaneous
  Country: US (occurrence: None)
  Receive Date: 20131204
  Receipt Date: 20131204
  Transmission Date: 20140711
  Serious: Yes (Life-Threatening, Hospitalization, Disabling)
  Sender: FDA-Public Use
  Company Number: None

PATIENT
  Age: 88 Year
  Sex: Female
  Weight: 69.85 kg

DRUGS (12)
  1. XARELTO [Suspect]
     Indication: ATRIAL FIBRILLATION
     Route: 048
     Dates: start: 20130815, end: 20131203
  2. GABAPENTIN [Concomitant]
  3. LORATADINE [Concomitant]
  4. LORAZEPAM [Concomitant]
  5. OLANZAPINE [Concomitant]
  6. POLYETHYLENE [Concomitant]
  7. KLOR-CON [Concomitant]
  8. RIVAROXABAN [Concomitant]
  9. SERTRALINE [Concomitant]
  10. ACETAMINOPHEN [Concomitant]
  11. COLCHICINE [Concomitant]
  12. CYANOCABALAMIN [Concomitant]

REACTIONS (1)
  - Ischaemic stroke [None]
